FAERS Safety Report 21266023 (Version 1)
Quarter: 2022Q3

REPORT INFORMATION
  Report Type: Spontaneous
  Country: CN (occurrence: CN)
  Receive Date: 20220829
  Receipt Date: 20220829
  Transmission Date: 20221026
  Serious: Yes (Hospitalization, Other)
  Sender: FDA-Public Use
  Company Number: CN-PFIZER INC-PV202200050933

PATIENT
  Age: 45 Year
  Sex: Female
  Weight: 57 kg

DRUGS (5)
  1. EPIRUBICIN [Suspect]
     Active Substance: EPIRUBICIN
     Indication: Lymphoma
     Dosage: 60 MG, 1X/DAY
     Route: 041
     Dates: start: 20220809, end: 20220810
  2. MABTHERA [Suspect]
     Active Substance: RITUXIMAB
     Indication: Lymphoma
     Dosage: 100 MG, 1X/DAY
     Route: 041
     Dates: start: 20220808, end: 20220808
  3. MABTHERA [Suspect]
     Active Substance: RITUXIMAB
     Indication: Lymphoma
     Dosage: 500 MG, 1X/DAY
     Route: 041
     Dates: start: 20220808, end: 20220808
  4. CYCLOPHOSPHAMIDE [Suspect]
     Active Substance: CYCLOPHOSPHAMIDE
     Indication: Lymphoma
     Dosage: 0.8 G, 1X/DAY
     Route: 042
     Dates: start: 20220809, end: 20220809
  5. VINDESINE SULFATE [Suspect]
     Active Substance: VINDESINE SULFATE
     Indication: Lymphoma
     Dosage: 4 MG, 1X/DAY
     Route: 042
     Dates: start: 20220809, end: 20220809

REACTIONS (1)
  - Myelosuppression [Recovered/Resolved]

NARRATIVE: CASE EVENT DATE: 20220817
